FAERS Safety Report 17299594 (Version 1)
Quarter: 2020Q1

REPORT INFORMATION
  Report Type: Spontaneous
  Country: US (occurrence: US)
  Receive Date: 20200122
  Receipt Date: 20200122
  Transmission Date: 20200409
  Serious: No
  Sender: FDA-Public Use
  Company Number: US-ALLERGAN-1907252US

PATIENT
  Sex: Male

DRUGS (3)
  1. RESTASIS [Suspect]
     Active Substance: CYCLOSPORINE
     Indication: DRY EYE
     Dosage: 1 GTT, Q12H
     Route: 047
  2. REFRESH TEARS [Interacting]
     Active Substance: CARBOXYMETHYLCELLULOSE SODIUM
     Indication: DRY EYE
     Dosage: 2-3 TIMES DAILY
     Route: 047
  3. REFRESH TEARS [Interacting]
     Active Substance: CARBOXYMETHYLCELLULOSE SODIUM
     Dosage: 4-5 TIMES DAILY
     Route: 047

REACTIONS (3)
  - Eye pain [Recovered/Resolved]
  - Drug interaction [Unknown]
  - Eye irritation [Not Recovered/Not Resolved]
